FAERS Safety Report 7778087-8 (Version None)
Quarter: 2011Q3

REPORT INFORMATION
  Report Type: 
  Country: None (occurrence: None)
  Receive Date: 20110926
  Receipt Date: 20110921
  Transmission Date: 20111222
  Serious: Yes (Life-Threatening, Hospitalization)
  Sender: FDA-Public Use
  Company Number: FR-PFIZER INC-2011191585

PATIENT
  Age: 39 Year
  Sex: Female

DRUGS (7)
  1. MARSILID PHOSPHATE TAB [Suspect]
     Indication: MAJOR DEPRESSION
     Dosage: 50 MG, 1X/DAY
     Route: 048
     Dates: start: 20110101, end: 20110530
  2. ACETAMINOPHEN [Suspect]
     Indication: PAIN IN EXTREMITY
     Dosage: 6 G, 1X/DAY
     Route: 048
     Dates: start: 20110525, end: 20110605
  3. LEVONORGESTREL AND ETHINYL ESTRADIOL [Suspect]
     Indication: CONTRACEPTION
     Dosage: 1 DF, 1X/DAY
     Route: 048
     Dates: end: 20110606
  4. RABEPRAZOLE SODIUM [Suspect]
     Dosage: 20 MG, 1X/DAY
     Dates: end: 20110606
  5. MARSILID PHOSPHATE TAB [Suspect]
     Dosage: 25 MG, 1X/DAY
     Dates: start: 20110531, end: 20110606
  6. HYDROXYZINE HYDROCHLORIDE [Suspect]
     Dosage: 1 DF, 3X/DAY
     Route: 048
     Dates: end: 20110606
  7. METEOSPASMYL [Suspect]
     Dosage: 1 DF, 3X/DAY
     Route: 048
     Dates: end: 20110606

REACTIONS (2)
  - LIVER TRANSPLANT [None]
  - HEPATITIS FULMINANT [None]
